FAERS Safety Report 14656304 (Version 1)
Quarter: 2018Q1

REPORT INFORMATION
  Report Type: Spontaneous
  Country: TR (occurrence: TR)
  Receive Date: 20180319
  Receipt Date: 20180319
  Transmission Date: 20180509
  Serious: Yes (Death)
  Sender: FDA-Public Use
  Company Number: TR-BIOMARINAP-TR-2018-117428

PATIENT
  Age: 9 Year
  Sex: Male

DRUGS (1)
  1. ALDURAZYME [Suspect]
     Active Substance: LARONIDASE
     Indication: MUCOPOLYSACCHARIDOSIS I
     Dosage: UNK UNK, QW
     Route: 042
     Dates: start: 20170930, end: 20171004

REACTIONS (3)
  - Respiratory failure [Fatal]
  - Tracheostomy malfunction [Fatal]
  - Cardiac failure [Fatal]

NARRATIVE: CASE EVENT DATE: 20171004
